FAERS Safety Report 8550309 (Version 3)
Quarter: 2012Q4

REPORT INFORMATION
  Report Type: 
  Country: US (occurrence: US)
  Receive Date: 20120507
  Receipt Date: 20120911
  Transmission Date: 20130627
  Serious: No
  Sender: FDA-Public Use
  Company Number: US-PFIZER INC-2012107434

PATIENT
  Age: 66 Year
  Sex: Male
  Weight: 99.77 kg

DRUGS (13)
  1. VIAGRA [Suspect]
     Indication: ERECTILE DYSFUNCTION
     Dosage: 50 mg, as needed
     Route: 048
     Dates: end: 2012
  2. VIAGRA [Interacting]
     Dosage: 100 mg, as needed
     Route: 048
     Dates: start: 2012, end: 2012
  3. VIAGRA [Interacting]
     Dosage: 200 mg, as needed
     Route: 048
     Dates: start: 2012
  4. VYVANSE [Interacting]
     Indication: SLEEP APNOEA SYNDROME
     Dosage: UNK
  5. PREVACID [Concomitant]
     Dosage: UNK
  6. AFRIN NASAL SPRAY [Concomitant]
     Indication: NASAL CONGESTION
     Dosage: UNK
     Route: 045
  7. PAXIL [Concomitant]
     Indication: DEPRESSION
     Dosage: UNK
  8. EFFEXOR [Concomitant]
     Indication: DEPRESSION
     Dosage: UNK
  9. PROVIGIL [Concomitant]
     Indication: DEPRESSION
     Dosage: UNK
  10. CELEXA [Concomitant]
     Indication: DEPRESSION
     Dosage: UNK
  11. WELLBUTRIN [Concomitant]
     Indication: DEPRESSION
     Dosage: UNK
  12. LAMICTAL [Concomitant]
     Indication: DEPRESSION
     Dosage: UNK
  13. NUVIGIL [Concomitant]
     Indication: SLEEP APNOEA SYNDROME
     Dosage: UNK

REACTIONS (6)
  - Off label use [Unknown]
  - Drug interaction [Unknown]
  - Drug effect decreased [Unknown]
  - Nasal congestion [Unknown]
  - Flushing [Unknown]
  - Gastrooesophageal reflux disease [Unknown]
